FAERS Safety Report 6145936-9 (Version None)
Quarter: 2009Q2

REPORT INFORMATION
  Report Type: 
  Country: None (occurrence: None)
  Receive Date: 20090407
  Receipt Date: 20090403
  Transmission Date: 20091009
  Serious: Yes (Death, Hospitalization)
  Sender: FDA-Public Use
  Company Number: PHEH2009US01684

PATIENT
  Sex: Female
  Weight: 55.329 kg

DRUGS (17)
  1. RECLAST [Suspect]
     Indication: COMPRESSION FRACTURE
     Dosage: 5 MG, ONCE/SINGLE
     Dates: start: 20090101, end: 20090101
  2. LASIX [Suspect]
     Indication: OEDEMA
     Dosage: 20 MG, QOD
     Route: 048
  3. SEPTRA DS [Concomitant]
     Indication: URINARY TRACT INFECTION
     Dosage: 1 TABLET, BID
     Route: 048
     Dates: start: 20081227, end: 20090107
  4. TRANXENE [Concomitant]
     Indication: ANXIETY
     Dosage: 3.75 MG, Q6H, PRN
  5. DARVOCET-N 100 [Concomitant]
     Dosage: 1 TABLET, Q4H, PRN
     Route: 048
  6. ALBUTEROL [Concomitant]
     Indication: WHEEZING
     Dosage: UNK, Q6H, PRN
  7. ATROVENT [Concomitant]
     Indication: WHEEZING
     Dosage: UNK, Q6H, PRN
  8. K-DUR [Concomitant]
     Dosage: 20 MBQ, QD
  9. PREDNISONE [Concomitant]
     Dosage: 10 MG, QD
  10. LIPITOR [Concomitant]
     Dosage: 20 MG, QHS
  11. STOOL SOFTENER [Concomitant]
     Dosage: UNK, QD
  12. NEXIUM [Concomitant]
     Dosage: 40 MG, QD
     Route: 048
  13. COUMADIN [Concomitant]
     Dosage: 3 MG, QD
     Route: 048
  14. ASMANEX TWISTHALER [Concomitant]
     Dosage: 1PUFF, BID
  15. SPIRIVA [Concomitant]
     Dosage: 1 TABLET, DAILY
  16. CARDIZEM CD [Concomitant]
     Dosage: 240 MG, QD
  17. NYSTATIN [Concomitant]
     Dosage: SWISH AND SWALLOW
     Route: 048

REACTIONS (5)
  - CONFUSIONAL STATE [None]
  - DECREASED APPETITE [None]
  - ELECTROLYTE IMBALANCE [None]
  - LETHARGY [None]
  - RENAL FAILURE ACUTE [None]
